FAERS Safety Report 4376457-1 (Version None)
Quarter: 2004Q2

REPORT INFORMATION
  Report Type: 
  Country: None (occurrence: None)
  Receive Date: 20040610
  Receipt Date: 20040608
  Transmission Date: 20050107
  Serious: Yes (Hospitalization)
  Sender: FDA-Public Use
  Company Number: 04-06-0808

PATIENT
  Age: 75 Year
  Sex: Male

DRUGS (2)
  1. CLOZAPINE [Suspect]
     Indication: BIPOLAR DISORDER
     Dosage: 12.5-300MG QD ORAL
     Route: 048
     Dates: start: 20031101
  2. CLOZAPINE [Suspect]
     Indication: SCHIZOPHRENIA
     Dosage: 12.5-300MG QD ORAL
     Route: 048
     Dates: start: 20031101

REACTIONS (1)
  - PNEUMONIA ASPIRATION [None]
